FAERS Safety Report 5543451-4 (Version None)
Quarter: 2007Q4

REPORT INFORMATION
  Report Type: 
  Country: None (occurrence: None)
  Receive Date: 20071210
  Receipt Date: 20061106
  Transmission Date: 20080405
  Serious: No
  Sender: FDA-Public Use
  Company Number: US-AMGEN-KDL199438

PATIENT
  Sex: Female

DRUGS (2)
  1. ENBREL [Suspect]
     Indication: PSORIASIS
     Route: 058
     Dates: start: 20030827
  2. METHOTREXATE [Concomitant]
     Dates: start: 19960101

REACTIONS (3)
  - CONDITION AGGRAVATED [None]
  - LOSS OF CONTROL OF LEGS [None]
  - PSORIASIS [None]
